FAERS Safety Report 8013098-9 (Version None)
Quarter: 2011Q4

REPORT INFORMATION
  Report Type: 
  Country: None (occurrence: None)
  Receive Date: 20111229
  Receipt Date: 20111226
  Transmission Date: 20120403
  Serious: Yes (Hospitalization, Other)
  Sender: FDA-Public Use
  Company Number: JP-PFIZER INC-2011313478

PATIENT
  Age: 67 Year
  Sex: Male

DRUGS (3)
  1. LOXONIN [Concomitant]
     Indication: GASTRITIS
     Dosage: UNK
     Route: 048
     Dates: start: 20111206
  2. ZITHROMAX [Suspect]
     Indication: PERIODONTAL DISEASE
     Dosage: 500MG/DAY
     Route: 048
     Dates: start: 20111214
  3. ISALON [Concomitant]
     Indication: GASTRITIS
     Dosage: UNK
     Route: 048
     Dates: start: 20111206

REACTIONS (3)
  - HEPATITIS FULMINANT [None]
  - HAEMATURIA [None]
  - FAECES DISCOLOURED [None]
